FAERS Safety Report 11219409 (Version 1)
Quarter: 2015Q2

REPORT INFORMATION
  Report Type: Spontaneous
  Country: CH (occurrence: CH)
  Receive Date: 20150625
  Receipt Date: 20150625
  Transmission Date: 20150821
  Serious: Yes (Hospitalization)
  Sender: FDA-Public Use
  Company Number: CH-ELI_LILLY_AND_COMPANY-CH201506006527

PATIENT
  Age: 77 Year
  Sex: Male

DRUGS (5)
  1. COSAAR [Concomitant]
     Active Substance: LOSARTAN POTASSIUM
     Dosage: 50 MG, QD
     Route: 048
  2. OMEGA 3                            /01333901/ [Concomitant]
     Active Substance: FISH OIL\TOCOPHEROL
     Dosage: UNK
     Route: 048
  3. EFIENT [Suspect]
     Active Substance: PRASUGREL HYDROCHLORIDE
     Indication: THROMBOSIS PROPHYLAXIS
     Dosage: 10 MG, QD
     Route: 048
     Dates: start: 201410, end: 201505
  4. EFIENT [Interacting]
     Active Substance: PRASUGREL HYDROCHLORIDE
     Dosage: 5 MG, QD
     Route: 048
  5. ASPIRIN                            /00002701/ [Interacting]
     Active Substance: ASPIRIN
     Indication: PRODUCT USED FOR UNKNOWN INDICATION
     Dosage: 100 MG, QD
     Route: 048

REACTIONS (4)
  - Upper gastrointestinal haemorrhage [Recovered/Resolved]
  - Iron deficiency anaemia [Recovering/Resolving]
  - Drug interaction [Unknown]
  - Acute myocardial infarction [Recovering/Resolving]

NARRATIVE: CASE EVENT DATE: 20150509
